FAERS Safety Report 19602195 (Version 1)
Quarter: 2021Q3

REPORT INFORMATION
  Report Type: Report from Study
  Country: US (occurrence: US)
  Receive Date: 20210723
  Receipt Date: 20210723
  Transmission Date: 20211014
  Serious: Yes (Death)
  Sender: FDA-Public Use
  Company Number: US-ASTRAZENECA-2021A632425

PATIENT
  Sex: Male

DRUGS (2)
  1. IMFINZI [Suspect]
     Active Substance: DURVALUMAB
     Dosage: OVER 60 MINUTES EVERY TWO WEEKS
     Route: 042
  2. IMFINZI [Suspect]
     Active Substance: DURVALUMAB
     Dosage: OVER 60 MINUTES EVERY TWO WEEKS
     Route: 042

REACTIONS (1)
  - Death [Fatal]
